FAERS Safety Report 4684730-2 (Version None)
Quarter: 2005Q2

REPORT INFORMATION
  Report Type: 
  Country: None (occurrence: None)
  Receive Date: 20050531
  Receipt Date: 20050128
  Transmission Date: 20051028
  Serious: Yes (Hospitalization, Other)
  Sender: FDA-Public Use
  Company Number: USA050189453

PATIENT
  Age: 33 Year
  Sex: Male

DRUGS (5)
  1. ZYPREXA [Suspect]
     Dosage: 10 MG IN THE EVENING
     Dates: start: 20011102
  2. COGENTIN [Concomitant]
  3. TOPAMAX [Concomitant]
  4. IMIPRAMINE [Concomitant]
  5. DEPAKOTE [Concomitant]

REACTIONS (2)
  - NEUROLEPTIC MALIGNANT SYNDROME [None]
  - PYREXIA [None]
